FAERS Safety Report 6825486-4 (Version None)
Quarter: 2010Q3

REPORT INFORMATION
  Report Type: 
  Country: None (occurrence: None)
  Receive Date: 20100708
  Receipt Date: 20070815
  Transmission Date: 20110219
  Serious: No
  Sender: FDA-Public Use
  Company Number: US-PFIZER INC-2006125985

PATIENT
  Sex: Female
  Weight: 51.26 kg

DRUGS (3)
  1. CHANTIX [Suspect]
     Indication: SMOKING CESSATION THERAPY
     Dates: start: 20060928, end: 20061006
  2. CAT'S CLAW [Concomitant]
  3. BIOTIN [Concomitant]

REACTIONS (4)
  - ANGER [None]
  - DRUG INEFFECTIVE [None]
  - FEELING ABNORMAL [None]
  - PALPITATIONS [None]
